FAERS Safety Report 14936766 (Version 2)
Quarter: 2018Q2

REPORT INFORMATION
  Report Type: Spontaneous
  Country: GB (occurrence: GB)
  Receive Date: 20180525
  Receipt Date: 20180626
  Transmission Date: 20180711
  Serious: Yes (Other)
  Sender: FDA-Public Use
  Company Number: GB-TEVA-2018-GB-897261

PATIENT
  Age: 84 Year
  Sex: Female
  Weight: 95.25 kg

DRUGS (12)
  1. OMEPRAZOLE. [Concomitant]
     Active Substance: OMEPRAZOLE
     Dosage: 20 MILLIGRAM DAILY;
     Dates: start: 20180124
  2. LIDOCAINE. [Concomitant]
     Active Substance: LIDOCAINE
     Dosage: 20MG/2ML . IMMEDIATELY
     Dates: start: 20180103
  3. DEPO-MEDRONE [Concomitant]
     Active Substance: METHYLPREDNISOLONE
     Dosage: 80MG/2ML. 1 IMMEDIATELY
     Dates: start: 20180103
  4. CLOPIDOGREL [Concomitant]
     Active Substance: CLOPIDOGREL BISULFATE
     Dosage: 75 MILLIGRAM DAILY;
     Dates: start: 20180124
  5. FUROSEMIDE. [Concomitant]
     Active Substance: FUROSEMIDE
     Dosage: 20 MILLIGRAM DAILY; EVERY MORNING
     Dates: start: 20180124
  6. ZEROBASE [Concomitant]
     Indication: DRY SKIN
     Dosage: APPLY.  AVOID NAKED FLAMES.
     Dates: start: 20180221
  7. FERROUS FUMARATE [Concomitant]
     Active Substance: FERROUS FUMARATE
     Dosage: 420 MILLIGRAM DAILY;
     Dates: start: 20171228
  8. FULTIUM-D3 [Concomitant]
     Active Substance: CHOLECALCIFEROL
     Dosage: 800 IU (INTERNATIONAL UNIT) DAILY;
     Dates: start: 20180124, end: 20180206
  9. PARACETAMOL [Concomitant]
     Active Substance: ACETAMINOPHEN
     Dosage: 1-2 TABLETS 4 HOURLY. MAXIMUM 8 TABLETS IN 24 HOURS.
     Dates: start: 20180111
  10. ADIZEM [Concomitant]
     Active Substance: DILTIAZEM HYDROCHLORIDE
     Dosage: 120 MILLIGRAM DAILY;
     Dates: start: 20180124
  11. IBUPROFEN. [Suspect]
     Active Substance: IBUPROFEN
     Indication: DRY EYE
     Route: 048
  12. FENBID [Concomitant]
     Active Substance: IBUPROFEN
     Dosage: TO BE APPLIED UP TO THREE TIMES
     Dates: start: 20180111

REACTIONS (1)
  - Dyspnoea [Recovered/Resolved]

NARRATIVE: CASE EVENT DATE: 20170919
